FAERS Safety Report 4766099-8 (Version None)
Quarter: 2005Q3

REPORT INFORMATION
  Report Type: 
  Country: None (occurrence: None)
  Receive Date: 20050912
  Receipt Date: 20050811
  Transmission Date: 20060218
  Serious: Yes (Hospitalization)
  Sender: FDA-Public Use
  Company Number: JP-MERCK-0508USA02751

PATIENT
  Age: 80 Year
  Sex: Female

DRUGS (12)
  1. TEGRETOL [Suspect]
     Indication: EPILEPSY
     Route: 048
     Dates: start: 20050620, end: 20050804
  2. ELAVIL [Suspect]
     Indication: URINE OUTPUT INCREASED
     Route: 048
     Dates: start: 20050801, end: 20050803
  3. VASOTEC RPD [Suspect]
     Indication: HYPERTENSION
     Route: 048
     Dates: start: 20050623, end: 20050806
  4. MAGNESIUM OXIDE [Concomitant]
     Indication: CONSTIPATION
     Route: 048
     Dates: start: 20050617
  5. FUROSEMIDE [Concomitant]
     Indication: CONSTIPATION
     Route: 048
     Dates: start: 20050617
  6. AMLODIN [Concomitant]
     Route: 048
  7. CLARITIN [Concomitant]
     Indication: PRURITUS
     Route: 048
     Dates: start: 20050801
  8. PEPCID [Suspect]
     Indication: GASTRIC ULCER
     Route: 048
     Dates: start: 20050623, end: 20050802
  9. ZOLPIDEM TARTRATE [Suspect]
     Indication: INSOMNIA
     Route: 048
     Dates: start: 20050617, end: 20050804
  10. TANATRIL [Concomitant]
     Route: 065
     Dates: start: 20050601
  11. NORVASC [Concomitant]
     Route: 065
     Dates: start: 20050601
  12. NIZATIDINE [Concomitant]
     Route: 065
     Dates: start: 20050601

REACTIONS (7)
  - AGRANULOCYTOSIS [None]
  - EPILEPSY [None]
  - GASTRIC ULCER [None]
  - NOCTURIA [None]
  - PRURITUS [None]
  - PYREXIA [None]
  - URINARY TRACT INFECTION [None]
